FAERS Safety Report 12934480 (Version 1)
Quarter: 2016Q4

REPORT INFORMATION
  Report Type: Spontaneous
  Country: GB (occurrence: GB)
  Receive Date: 20161111
  Receipt Date: 20161111
  Transmission Date: 20170207
  Serious: Yes (Other)
  Sender: FDA-Public Use
  Company Number: GB-GLAXOSMITHKLINE-GB2016GSK161082

PATIENT
  Sex: Male

DRUGS (1)
  1. NIQUITIN [Suspect]
     Active Substance: NICOTINE
     Indication: PRODUCT USED FOR UNKNOWN INDICATION
     Dosage: 21 MG, UNK
     Route: 062
     Dates: start: 20161004

REACTIONS (5)
  - Chest pain [Unknown]
  - Vomiting [Unknown]
  - Dizziness [Unknown]
  - Tremor [Unknown]
  - Consciousness fluctuating [Unknown]

NARRATIVE: CASE EVENT DATE: 20161004
